FAERS Safety Report 19086087 (Version 3)
Quarter: 2021Q3

REPORT INFORMATION
  Report Type: Spontaneous
  Country: US (occurrence: US)
  Receive Date: 20210402
  Receipt Date: 20210714
  Transmission Date: 20211014
  Serious: Yes (Other)
  Sender: FDA-Public Use
  Company Number: US-PFIZER INC-2021343153

PATIENT
  Age: 82 Year
  Sex: Male

DRUGS (1)
  1. XELJANZ XR [Suspect]
     Active Substance: TOFACITINIB CITRATE
     Indication: RHEUMATOID ARTHRITIS
     Dosage: 11 MG, DAILY
     Route: 048
     Dates: start: 201910

REACTIONS (9)
  - Inflammation [Unknown]
  - Pain [Not Recovered/Not Resolved]
  - Neoplasm malignant [Unknown]
  - Cellulitis [Unknown]
  - Urinary retention [Unknown]
  - Lipoma [Recovered/Resolved]
  - Inflammation [Recovered/Resolved]
  - Skin lesion [Recovered/Resolved]
  - Herpes zoster [Unknown]

NARRATIVE: CASE EVENT DATE: 2019
